FAERS Safety Report 6507253-4 (Version None)
Quarter: 2009Q4

REPORT INFORMATION
  Report Type: 
  Country: None (occurrence: None)
  Receive Date: 20091221
  Receipt Date: 20091215
  Transmission Date: 20100525
  Serious: Yes (Death)
  Sender: FDA-Public Use
  Company Number: PHHY2009JP55880

PATIENT
  Sex: Female

DRUGS (3)
  1. ZOLEDRONATE T29581+ [Suspect]
     Indication: METASTASES TO BONE
     Dosage: 4 MG DILUTED TO 100ML EVERY FOUR WEEKS
     Route: 042
     Dates: start: 20070903, end: 20071113
  2. PREDNISOLONE [Concomitant]
     Dosage: 20 MG, UNK
     Route: 048
     Dates: start: 20071101, end: 20071119
  3. MS CONTIN [Concomitant]
     Dosage: 360 MG, UNK
     Route: 048
     Dates: start: 20070723, end: 20071123

REACTIONS (1)
  - DEATH [None]
